FAERS Safety Report 16011847 (Version 1)
Quarter: 2019Q1

REPORT INFORMATION
  Report Type: Spontaneous
  Country: DE (occurrence: DE)
  Receive Date: 20190227
  Receipt Date: 20190227
  Transmission Date: 20190418
  Serious: Yes (Hospitalization)
  Sender: FDA-Public Use
  Company Number: DE-BAYER-2019-040222

PATIENT
  Age: 40 Year
  Sex: Female

DRUGS (1)
  1. BETAFERON [Suspect]
     Active Substance: INTERFERON BETA-1B
     Indication: MULTIPLE SCLEROSIS
     Dosage: UNK

REACTIONS (16)
  - Inflammation [None]
  - Muscle spasticity [None]
  - Pyrexia [None]
  - Pain [None]
  - Hospitalisation [None]
  - Surgery [None]
  - Muscle spasticity [None]
  - Headache [None]
  - Injection site induration [None]
  - Injection site swelling [None]
  - Injection site swelling [None]
  - Product dose omission [None]
  - Nasopharyngitis [None]
  - Gait disturbance [None]
  - Injection site pain [None]
  - Injection site pain [None]

NARRATIVE: CASE EVENT DATE: 20171006
